FAERS Safety Report 25713582 (Version 2)
Quarter: 2025Q3

REPORT INFORMATION
  Report Type: Report from Study
  Country: CN (occurrence: CN)
  Receive Date: 20250822
  Receipt Date: 20250919
  Transmission Date: 20251020
  Serious: Yes (Other)
  Sender: TEVA
  Company Number: CN-TEVA-VS-3354576

PATIENT
  Age: 49 Year
  Sex: Female
  Weight: 59.2 kg

DRUGS (10)
  1. AUSTEDO [Suspect]
     Active Substance: DEUTETRABENAZINE
     Indication: Huntington^s disease
     Dosage: 6 MG IN THE MORNING, 12 MG IN THE EVENING
     Route: 048
     Dates: start: 20250724, end: 20250731
  2. AUSTEDO [Suspect]
     Active Substance: DEUTETRABENAZINE
     Indication: Huntington^s disease
     Route: 048
     Dates: start: 20250620, end: 20250626
  3. AUSTEDO [Suspect]
     Active Substance: DEUTETRABENAZINE
     Indication: Huntington^s disease
     Dosage: 6MG IN THE MORNING, 6MG IN THE EVENING
     Route: 048
     Dates: start: 20250627, end: 20250703
  4. AUSTEDO [Suspect]
     Active Substance: DEUTETRABENAZINE
     Indication: Huntington^s disease
     Dosage: 12MG IN THE MORNING, 6MG IN THE EVENING
     Route: 048
     Dates: start: 20250704, end: 20250710
  5. AUSTEDO [Suspect]
     Active Substance: DEUTETRABENAZINE
     Indication: Huntington^s disease
     Route: 048
     Dates: start: 20250711, end: 20250723
  6. AUSTEDO [Suspect]
     Active Substance: DEUTETRABENAZINE
     Indication: Huntington^s disease
     Route: 048
     Dates: start: 20250801, end: 20250812
  7. AUSTEDO [Suspect]
     Active Substance: DEUTETRABENAZINE
     Indication: Huntington^s disease
     Route: 048
     Dates: start: 20250815, end: 20250821
  8. AUSTEDO [Suspect]
     Active Substance: DEUTETRABENAZINE
     Indication: Huntington^s disease
     Dosage: 12 MG IN THE MORNING, 6 MG IN THE EVENING
     Route: 048
     Dates: start: 20250822, end: 20250909
  9. PAROXETINE HYDROCHLORIDE [Concomitant]
     Active Substance: PAROXETINE HYDROCHLORIDE
     Indication: Depression
     Route: 048
     Dates: start: 202403
  10. OLANZAPINE [Concomitant]
     Active Substance: OLANZAPINE
     Indication: Huntington^s disease
     Route: 048
     Dates: start: 202403

REACTIONS (4)
  - Deafness [Recovered/Resolved]
  - Gait disturbance [Recovered/Resolved]
  - Product use issue [Unknown]
  - Product use issue [Unknown]

NARRATIVE: CASE EVENT DATE: 20250620
